FAERS Safety Report 22145536 (Version 1)
Quarter: 2023Q1

REPORT INFORMATION
  Report Type: Spontaneous
  Country: CA (occurrence: None)
  Receive Date: 20230328
  Receipt Date: 20230328
  Transmission Date: 20230418
  Serious: Yes (Other)
  Sender: FDA-Public Use
  Company Number: CA-PFIZER INC-202201345913

PATIENT
  Age: 49 Year
  Sex: Female

DRUGS (6)
  1. METHOTREXATE [Suspect]
     Active Substance: METHOTREXATE
     Indication: Psoriatic arthropathy
     Route: 048
     Dates: start: 2009
  2. FOLIC ACID [Concomitant]
     Active Substance: FOLIC ACID
     Dosage: TWICE A WEEK
     Route: 065
  3. HADLIMA [Concomitant]
     Active Substance: ADALIMUMAB-BWWD
     Route: 065
     Dates: start: 202204
  4. HUMIRA [Concomitant]
     Active Substance: ADALIMUMAB
     Route: 065
     Dates: start: 2012, end: 202204
  5. PLAQUENIL [Concomitant]
     Active Substance: HYDROXYCHLOROQUINE SULFATE
     Route: 065
     Dates: start: 2009
  6. ABRILADA [Concomitant]
     Active Substance: ADALIMUMAB-AFZB
     Route: 065
     Dates: start: 202212

REACTIONS (3)
  - Arthralgia [Not Recovered/Not Resolved]
  - Drug ineffective [Unknown]
  - Synovitis [Recovered/Resolved]
